FAERS Safety Report 8958822 (Version 1)
Quarter: 2012Q4

REPORT INFORMATION
  Report Type: 
  Country: US (occurrence: US)
  Receive Date: 20121211
  Receipt Date: 20121211
  Transmission Date: 20130627
  Serious: No
  Sender: FDA-Public Use
  Company Number: US-ASTRAZENECA-2012SE87499

PATIENT
  Age: 74 Year
  Sex: Female
  Weight: 123.8 kg

DRUGS (15)
  1. CRESTOR [Suspect]
     Indication: BLOOD CHOLESTEROL ABNORMAL
     Route: 048
     Dates: start: 201111, end: 2011
  2. CRESTOR [Suspect]
     Indication: BLOOD TRIGLYCERIDES ABNORMAL
     Route: 048
     Dates: start: 201111, end: 2011
  3. CRESTOR [Suspect]
     Indication: BLOOD CHOLESTEROL ABNORMAL
     Route: 048
     Dates: start: 2011
  4. CRESTOR [Suspect]
     Indication: BLOOD TRIGLYCERIDES ABNORMAL
     Route: 048
     Dates: start: 2011
  5. ACTOS [Suspect]
     Route: 065
  6. DIOVAN [Concomitant]
     Indication: HYPERTENSION
  7. PROPANOLOL [Concomitant]
     Indication: HYPERTENSION
  8. ALLOPURINOL [Concomitant]
     Indication: GOUT
  9. HCTZ [Concomitant]
     Indication: HYPERTENSION
  10. BUMETANIDE [Concomitant]
     Indication: DIURETIC THERAPY
  11. FENOFIBRATE [Concomitant]
     Indication: BLOOD TRIGLYCERIDES
  12. TRI-CLOR [Concomitant]
     Indication: BLOOD TRIGLYCERIDES
  13. LANTUS [Concomitant]
     Indication: DIABETES MELLITUS
  14. INDOCIN [Concomitant]
     Indication: GOUT
  15. PRANDIN [Concomitant]
     Indication: DIABETES MELLITUS

REACTIONS (7)
  - Oedema peripheral [Unknown]
  - Peripheral vascular disorder [Unknown]
  - Gout [Unknown]
  - Blood creatinine increased [Unknown]
  - Weight decreased [Unknown]
  - Hunger [Unknown]
  - Fatigue [Recovered/Resolved]
